FAERS Safety Report 7824352-5 (Version None)
Quarter: 2011Q4

REPORT INFORMATION
  Report Type: 
  Country: None (occurrence: None)
  Receive Date: 20111018
  Receipt Date: 20111018
  Transmission Date: 20120403
  Serious: No
  Sender: FDA-Public Use
  Company Number: None

PATIENT
  Age: 72 Year
  Sex: Female
  Weight: 62.5 kg

DRUGS (11)
  1. LIPITOR [Concomitant]
  2. VANCOMYCIN HCL [Concomitant]
  3. CEFTRIAXONE [Suspect]
     Indication: PNEUMONIA
     Dosage: 2 GM Q12H IV
     Route: 042
     Dates: start: 20110924, end: 20110929
  4. CEFTRIAXONE [Suspect]
     Indication: SEPSIS
     Dosage: 2 GM Q12H IV
     Route: 042
     Dates: start: 20110924, end: 20110929
  5. DEXAMETHASONE [Concomitant]
  6. POTASSIUM CHLORIDE [Concomitant]
  7. ASCORBIC ACID [Concomitant]
  8. VALSARTAN [Concomitant]
  9. ALLOPURINOL [Concomitant]
  10. LORATADINE [Concomitant]
  11. LEVOTHYROXINE SODIUM [Concomitant]

REACTIONS (3)
  - RASH ERYTHEMATOUS [None]
  - RASH MACULAR [None]
  - PRURITUS [None]
